FAERS Safety Report 11883848 (Version 1)
Quarter: 2016Q1

REPORT INFORMATION
  Report Type: Spontaneous
  Country: JP (occurrence: JP)
  Receive Date: 20160101
  Receipt Date: 20160101
  Transmission Date: 20160526
  Serious: Yes (Hospitalization)
  Sender: FDA-Public Use
  Company Number: JP-ASTRAZENECA-2015SF29148

PATIENT
  Age: 76 Year
  Sex: Male

DRUGS (5)
  1. VOGLIBOSE [Concomitant]
     Active Substance: VOGLIBOSE
     Route: 048
  2. AMARYL [Suspect]
     Active Substance: GLIMEPIRIDE
     Dosage: 1 MG, DAILY, NUMBER OF SEPARATE DOSAGES UNKNOWN,
     Route: 048
     Dates: end: 201512
  3. GLACTIV [Concomitant]
     Active Substance: SITAGLIPTIN
     Route: 048
  4. AMARYL [Suspect]
     Active Substance: GLIMEPIRIDE
     Dosage: 4 MG, DAILY, NUMBER OF SEPARATE DOSAGES UNKNOWN,
     Route: 048
     Dates: end: 201512
  5. FORXIGA [Suspect]
     Active Substance: DAPAGLIFLOZIN
     Indication: TYPE 2 DIABETES MELLITUS
     Route: 048
     Dates: end: 20151203

REACTIONS (3)
  - Epilepsy [Recovered/Resolved]
  - Altered state of consciousness [Recovered/Resolved]
  - Hypoglycaemia [Recovered/Resolved]

NARRATIVE: CASE EVENT DATE: 20151201
